FAERS Safety Report 17566307 (Version 2)
Quarter: 2020Q1

REPORT INFORMATION
  Report Type: Report from Study
  Country: CO (occurrence: CO)
  Receive Date: 20200320
  Receipt Date: 20200330
  Transmission Date: 20200409
  Serious: Yes (Hospitalization, Other)
  Sender: FDA-Public Use
  Company Number: CO-JNJFOC-20200320628

PATIENT
  Age: 75 Year
  Sex: Female
  Weight: 60 kg

DRUGS (2)
  1. SIMPONI [Suspect]
     Active Substance: GOLIMUMAB
     Indication: RHEUMATOID ARTHRITIS
     Route: 058
     Dates: start: 2019
  2. METHOTREXATE. [Concomitant]
     Active Substance: METHOTREXATE
     Indication: RHEUMATOID ARTHRITIS
     Route: 058

REACTIONS (9)
  - Depression [Unknown]
  - Large intestine perforation [Not Recovered/Not Resolved]
  - Wound infection [Recovering/Resolving]
  - Peripheral swelling [Unknown]
  - Peritonitis [Not Recovered/Not Resolved]
  - Diverticulum [Recovering/Resolving]
  - Muscle spasms [Unknown]
  - Urinary tract infection [Unknown]
  - Amnesia [Unknown]

NARRATIVE: CASE EVENT DATE: 202002
